FAERS Safety Report 21137434 (Version 1)
Quarter: 2022Q3

REPORT INFORMATION
  Report Type: Spontaneous
  Country: US (occurrence: US)
  Receive Date: 20220727
  Receipt Date: 20220727
  Transmission Date: 20221026
  Serious: No
  Sender: FDA-Public Use
  Company Number: US-VELOXIS PHARMACEUTCALS-2022VELUS-000006

PATIENT
  Sex: Female

DRUGS (4)
  1. ENVARSUS XR [Suspect]
     Active Substance: TACROLIMUS
     Indication: Renal transplant
     Dosage: 1.75 MG, QD
     Route: 048
     Dates: start: 202105
  2. ENVARSUS XR [Suspect]
     Active Substance: TACROLIMUS
     Dosage: 2 MG, QD
     Route: 048
  3. ENVARSUS XR [Suspect]
     Active Substance: TACROLIMUS
     Dosage: 1.5 MG, QD
     Route: 048
  4. ENVARSUS XR [Suspect]
     Active Substance: TACROLIMUS
     Dosage: 2.25 MG, QD
     Route: 048

REACTIONS (3)
  - Drug level fluctuating [Not Recovered/Not Resolved]
  - Alopecia [Not Recovered/Not Resolved]
  - Night sweats [Not Recovered/Not Resolved]
